FAERS Safety Report 24860577 (Version 1)
Quarter: 2025Q1

REPORT INFORMATION
  Report Type: Other
  Country: BE (occurrence: BE)
  Receive Date: 20250120
  Receipt Date: 20250120
  Transmission Date: 20250409
  Serious: Yes (Death)
  Sender: ANI
  Company Number: BE-ANIPHARMA-015379

PATIENT
  Age: 2 Year
  Sex: Female

DRUGS (7)
  1. CYCLOPHOSPHAMIDE [Suspect]
     Active Substance: CYCLOPHOSPHAMIDE
     Indication: Rhabdoid tumour
  2. DOXORUBICIN [Concomitant]
     Active Substance: DOXORUBICIN
     Indication: Rhabdoid tumour
  3. IFOSFAMIDE [Concomitant]
     Active Substance: IFOSFAMIDE
     Indication: Rhabdoid tumour
  4. CARBOPLATIN [Concomitant]
     Active Substance: CARBOPLATIN
     Indication: Rhabdoid tumour
  5. ETOPOSIDE [Concomitant]
     Active Substance: ETOPOSIDE
     Indication: Rhabdoid tumour
  6. VINCRISTINE [Concomitant]
     Active Substance: VINCRISTINE
     Indication: Rhabdoid tumour
  7. DACTINOMYCIN [Concomitant]
     Active Substance: DACTINOMYCIN
     Indication: Rhabdoid tumour

REACTIONS (1)
  - Drug ineffective [Fatal]
